FAERS Safety Report 19401858 (Version 2)
Quarter: 2021Q2

REPORT INFORMATION
  Report Type: Other
  Country: CA (occurrence: CA)
  Receive Date: 20210611
  Receipt Date: 20210617
  Transmission Date: 20210717
  Serious: Yes (Hospitalization)
  Sender: FDA-Public Use
  Company Number: CA-ROCHE-2844942

PATIENT
  Sex: Female

DRUGS (11)
  1. ACTEMRA [Suspect]
     Active Substance: TOCILIZUMAB
     Dosage: FIRST PIR RECEIVED
     Route: 042
     Dates: start: 20151106, end: 2016
  2. ACTEMRA [Suspect]
     Active Substance: TOCILIZUMAB
     Route: 042
     Dates: start: 20160204, end: 20160304
  3. RESTASIS [Concomitant]
     Active Substance: CYCLOSPORINE
  4. DESMOPRESSIN [Concomitant]
     Active Substance: DESMOPRESSIN
  5. METHOTREXATE. [Concomitant]
     Active Substance: METHOTREXATE
  6. FOLIC ACID. [Concomitant]
     Active Substance: FOLIC ACID
  7. ACTEMRA [Suspect]
     Active Substance: TOCILIZUMAB
     Indication: RHEUMATOID ARTHRITIS
     Dosage: DRUG DOSE FIRST ADMINISTERED IS UNKNOWN
     Route: 042
     Dates: start: 20140528, end: 2015
  8. ACTEMRA [Suspect]
     Active Substance: TOCILIZUMAB
     Route: 042
     Dates: start: 202103
  9. ACTEMRA [Suspect]
     Active Substance: TOCILIZUMAB
     Indication: RHEUMATOID ARTHRITIS
     Dosage: ONGOING, DOSING DETAILS NOT PROVIDED
     Route: 058
     Dates: start: 202103
  10. AMITRIPTYLINE [Concomitant]
     Active Substance: AMITRIPTYLINE
  11. CELEBREX [Concomitant]
     Active Substance: CELECOXIB

REACTIONS (1)
  - Cystitis [Unknown]
